FAERS Safety Report 5217301-X (Version None)
Quarter: 2007Q1

REPORT INFORMATION
  Report Type: 
  Country: None (occurrence: None)
  Receive Date: 20070124
  Receipt Date: 20051223
  Transmission Date: 20070707
  Serious: No
  Sender: FDA-Public Use
  Company Number: US-GLAXOSMITHKLINE-A0586923A

PATIENT
  Age: 34 Year
  Sex: Female

DRUGS (3)
  1. PAXIL CR [Suspect]
     Dosage: 25MG PER DAY
     Route: 048
  2. WELLBUTRIN [Suspect]
     Indication: ANXIETY
     Dosage: 150MG TWICE PER DAY
     Route: 048
  3. SYNTHROID [Concomitant]

REACTIONS (4)
  - DRY MOUTH [None]
  - NAUSEA [None]
  - PALPITATIONS [None]
  - TREMOR [None]
